FAERS Safety Report 10192411 (Version 1)
Quarter: 2014Q2

REPORT INFORMATION
  Report Type: Spontaneous
  Country: JP (occurrence: None)
  Receive Date: 20140521
  Receipt Date: 20140521
  Transmission Date: 20141212
  Serious: Yes (Hospitalization, Other)
  Sender: FDA-Public Use
  Company Number: ANI-2014-1379581

PATIENT
  Age: 57 Year
  Sex: Male

DRUGS (2)
  1. FLUVOXAMINE [Suspect]
     Indication: DEPRESSION
  2. DULOXETINE [Suspect]
     Indication: DEPRESSION

REACTIONS (10)
  - Arteriospasm coronary [None]
  - Serotonin syndrome [None]
  - Loss of consciousness [None]
  - Tachycardia [None]
  - Hyperhidrosis [None]
  - Hyperthermia [None]
  - Electrocardiogram ST segment elevation [None]
  - Coronary artery occlusion [None]
  - Blood creatine phosphokinase increased [None]
  - Blood creatine phosphokinase MB increased [None]
